FAERS Safety Report 10393997 (Version 2)
Quarter: 2014Q3

REPORT INFORMATION
  Report Type: Report from Study
  Country: CL (occurrence: CL)
  Receive Date: 20140819
  Receipt Date: 20140819
  Transmission Date: 20150326
  Serious: Yes (Other)
  Sender: FDA-Public Use
  Company Number: PHHY2014CL067647

PATIENT
  Age: 25 Year
  Sex: Female
  Weight: 75 kg

DRUGS (4)
  1. SANDOSTATIN LAR DEPOT [Suspect]
     Active Substance: OCTREOTIDE ACETATE
     Indication: ACROMEGALY
     Dosage: 30 MG, UNK
     Route: 030
     Dates: start: 201111, end: 201210
  2. PARACETAMOL [Concomitant]
     Active Substance: ACETAMINOPHEN
     Dosage: 500 MG, UNK
     Route: 048
     Dates: start: 201111, end: 201210
  3. SANDOSTATIN LAR DEPOT [Suspect]
     Active Substance: OCTREOTIDE ACETATE
     Dosage: 20 MG, EVERY 28 DAYS
     Route: 030
     Dates: start: 201312
  4. DOSTINEX [Concomitant]
     Active Substance: CABERGOLINE
     Indication: ACROMEGALY
     Dosage: 0.5 MG, QW
     Route: 048
     Dates: start: 201312

REACTIONS (3)
  - Menorrhagia [Unknown]
  - Gestational diabetes [Unknown]
  - Maternal exposure during pregnancy [Unknown]

NARRATIVE: CASE EVENT DATE: 20120505
